FAERS Safety Report 9632388 (Version 1)
Quarter: 2013Q4

REPORT INFORMATION
  Report Type: Spontaneous
  Country: RO (occurrence: RO)
  Receive Date: 20131018
  Receipt Date: 20131018
  Transmission Date: 20140711
  Serious: Yes (Hospitalization)
  Sender: FDA-Public Use
  Company Number: RO-TEVA-437949ISR

PATIENT
  Age: 81 Year
  Sex: Female

DRUGS (2)
  1. INDAPAMIDE [Suspect]
     Indication: SUICIDE ATTEMPT
     Dosage: 16 X TABLETS OF 1.5MG SLOW RELEASE
     Route: 065
  2. DILTIAZEM [Suspect]
     Indication: SUICIDE ATTEMPT
     Dosage: 96 X TABLETS OF 60MG
     Route: 065

REACTIONS (8)
  - Cardiotoxicity [Recovered/Resolved]
  - Metabolic acidosis [Recovered/Resolved]
  - Lung infiltration [Recovered/Resolved]
  - Atrioventricular block second degree [Recovered/Resolved]
  - Sinus bradycardia [Recovered/Resolved]
  - Suicide attempt [Recovered/Resolved]
  - Loss of consciousness [Recovered/Resolved]
  - Intentional overdose [Recovered/Resolved]
